FAERS Safety Report 7946320-5 (Version None)
Quarter: 2011Q4

REPORT INFORMATION
  Report Type: 
  Country: None (occurrence: None)
  Receive Date: 20111122
  Receipt Date: 20111114
  Transmission Date: 20120403
  Serious: Yes (Other)
  Sender: FDA-Public Use
  Company Number: 2011SP030741

PATIENT
  Sex: Female

DRUGS (1)
  1. SYCREST (ASENAPINE /05706901/) [Suspect]
     Indication: PRODUCT USED FOR UNKNOWN INDICATION
     Dates: start: 20110601, end: 20110601

REACTIONS (3)
  - DYSARTHRIA [None]
  - HYPOAESTHESIA ORAL [None]
  - PHARYNGEAL HYPOAESTHESIA [None]
